FAERS Safety Report 18856729 (Version 2)
Quarter: 2021Q1

REPORT INFORMATION
  Report Type: Spontaneous
  Country: US (occurrence: US)
  Receive Date: 20210207
  Receipt Date: 20210225
  Transmission Date: 20210420
  Serious: No
  Sender: FDA-Public Use
  Company Number: US-TAKEDA-2021TUS006173

PATIENT
  Sex: Female
  Weight: 68.03 kg

DRUGS (12)
  1. DIPHENHYDRAMINE. [Concomitant]
     Active Substance: DIPHENHYDRAMINE
  2. BENEFIBER [CYAMOPSIS TETRAGONOLOBA GUM] [Concomitant]
     Active Substance: GUAR GUM
  3. SIMVASTATIN. [Concomitant]
     Active Substance: SIMVASTATIN
  4. LISINOPRIL. [Concomitant]
     Active Substance: LISINOPRIL
  5. IBUPROFEN. [Concomitant]
     Active Substance: IBUPROFEN
  6. BUSPIRONE [Concomitant]
     Active Substance: BUSPIRONE HYDROCHLORIDE
  7. HYQVIA [Suspect]
     Active Substance: HUMAN IMMUNOGLOBULIN G\HYALURONIDASE RECOMBINANT HUMAN
     Indication: IMMUNODEFICIENCY COMMON VARIABLE
     Dosage: 30 GRAM, Q4WEEKS
     Route: 058
     Dates: start: 20170224
  8. ACETAMINOPHEN. [Concomitant]
     Active Substance: ACETAMINOPHEN
  9. EPINEPHRINE. [Concomitant]
     Active Substance: EPINEPHRINE
  10. PAIN RELIEVER PM [Concomitant]
     Active Substance: ACETAMINOPHEN\DIPHENHYDRAMINE HYDROCHLORIDE
  11. NORMAL SALINE [Concomitant]
     Active Substance: SODIUM CHLORIDE
  12. ADVIL [Concomitant]
     Active Substance: IBUPROFEN

REACTIONS (2)
  - Injection site pain [Unknown]
  - Meniscus injury [Unknown]
